FAERS Safety Report 4857088-3 (Version None)
Quarter: 2005Q4

REPORT INFORMATION
  Report Type: 
  Country: None (occurrence: None)
  Receive Date: 20051215
  Receipt Date: 20051215
  Transmission Date: 20060501
  Serious: Yes (Death, Hospitalization)
  Sender: FDA-Public Use
  Company Number: None

PATIENT
  Sex: Male
  Weight: 69 kg

DRUGS (4)
  1. ESTRAMUSINE [Suspect]
     Dosage: SEE IMAGE
     Route: 048
     Dates: start: 20051108, end: 20051206
  2. ESTRAMUSINE [Suspect]
     Dosage: SEE IMAGE
     Route: 048
     Dates: start: 20051108
  3. DOCETAXEL [Suspect]
     Dosage: SEE IMAGE
     Route: 042
     Dates: start: 20051108, end: 20051206
  4. ASPIRIN [Concomitant]

REACTIONS (7)
  - DUODENAL ULCER [None]
  - FATIGUE [None]
  - GASTRIC ULCER [None]
  - GASTROINTESTINAL HAEMORRHAGE [None]
  - HAEMATOCHEZIA [None]
  - HAEMOGLOBIN DECREASED [None]
  - MUCOSAL INFLAMMATION [None]
